FAERS Safety Report 17529850 (Version 1)
Quarter: 2020Q1

REPORT INFORMATION
  Report Type: Spontaneous
  Country: CA (occurrence: CA)
  Receive Date: 20200312
  Receipt Date: 20200312
  Transmission Date: 20200409
  Serious: Yes (Other)
  Sender: FDA-Public Use
  Company Number: CA-SA-2020SA061851

PATIENT
  Age: 60 Year
  Sex: Male

DRUGS (12)
  1. XOLAIR [Suspect]
     Active Substance: OMALIZUMAB
     Indication: ASTHMA
     Dosage: 300 MG, QD
     Route: 058
  2. ZENHALE [Concomitant]
     Active Substance: FORMOTEROL FUMARATE\MOMETASONE FUROATE
  3. PULMICORT TURBUHALER [Concomitant]
     Active Substance: BUDESONIDE
  4. TUDORZA GENUAIR [Concomitant]
     Active Substance: ACLIDINIUM BROMIDE
  5. DUTASTERIDE. [Concomitant]
     Active Substance: DUTASTERIDE
  6. FLOMAX [Suspect]
     Active Substance: TAMSULOSIN HYDROCHLORIDE
     Indication: PRODUCT USED FOR UNKNOWN INDICATION
     Dosage: 4 MG, QD
     Route: 048
  7. MONTELUKAST [Suspect]
     Active Substance: MONTELUKAST SODIUM
     Indication: PRODUCT USED FOR UNKNOWN INDICATION
     Dosage: 10 MG, QD
     Route: 048
  8. PMS-ZOPICLONE [Concomitant]
     Active Substance: ZOPICLONE
  9. SODIUM CHLORIDE. [Concomitant]
     Active Substance: SODIUM CHLORIDE
  10. REACTINE [CETIRIZINE HYDROCHLORIDE] [Concomitant]
     Active Substance: CETIRIZINE HYDROCHLORIDE
  11. SALBUTAMOL [Concomitant]
     Active Substance: ALBUTEROL
  12. VENTOLINE [SALBUTAMOL] [Concomitant]
     Active Substance: ALBUTEROL SULFATE

REACTIONS (15)
  - Upper respiratory tract infection [Recovering/Resolving]
  - Nasopharyngitis [Recovering/Resolving]
  - Ear discomfort [Recovering/Resolving]
  - Eosinophil count increased [Recovering/Resolving]
  - Parosmia [Recovering/Resolving]
  - Psychomotor hyperactivity [Recovering/Resolving]
  - Dyspnoea exertional [Recovering/Resolving]
  - Obstructive airways disorder [Recovering/Resolving]
  - Asthma [Recovering/Resolving]
  - Cough [Recovering/Resolving]
  - Weight decreased [Recovering/Resolving]
  - Drug ineffective [Unknown]
  - Insomnia [Recovering/Resolving]
  - Respiratory tract irritation [Recovering/Resolving]
  - Malaise [Recovering/Resolving]
